FAERS Safety Report 6967611-0 (Version None)
Quarter: 2010Q3

REPORT INFORMATION
  Report Type: 
  Country: None (occurrence: None)
  Receive Date: 20100907
  Receipt Date: 20100827
  Transmission Date: 20110219
  Serious: Yes (Disabling)
  Sender: FDA-Public Use
  Company Number: JP-BAXTER-2010BH022395

PATIENT
  Age: 63 Year
  Sex: Male
  Weight: 73 kg

DRUGS (8)
  1. ADVATE [Suspect]
     Indication: FACTOR VIII DEFICIENCY
     Route: 042
     Dates: start: 20070410
  2. AMLODIPINE [Concomitant]
     Indication: HYPERTENSION
     Route: 048
  3. NU-LOTAN [Concomitant]
     Indication: HYPERTENSION
     Route: 048
  4. GASTER D [Concomitant]
     Indication: GASTRITIS
     Route: 048
  5. DIAZEPAM [Concomitant]
     Indication: CONVULSION
     Route: 048
  6. PRIMIDONE [Concomitant]
     Indication: CONVULSION
     Route: 048
  7. TRANEXAMIC ACID [Concomitant]
     Indication: PROPHYLAXIS
     Route: 048
  8. JUVELA [Concomitant]
     Indication: PROPHYLAXIS
     Route: 048

REACTIONS (1)
  - CEREBRAL HAEMORRHAGE [None]
